FAERS Safety Report 4984529-3 (Version None)
Quarter: 2006Q2

REPORT INFORMATION
  Report Type: 
  Country: None (occurrence: None)
  Receive Date: 20060421
  Receipt Date: 20060411
  Transmission Date: 20061013
  Serious: Yes (Other)
  Sender: FDA-Public Use
  Company Number: GXKR2006CA01906

PATIENT
  Age: 14 Month
  Sex: Male

DRUGS (3)
  1. DEXAMETHASONE [Suspect]
     Indication: ACUTE LYMPHOCYTIC LEUKAEMIA
  2. VINCRISTINE [Suspect]
     Indication: ACUTE LYMPHOCYTIC LEUKAEMIA
  3. PEGASPARGASE(PEGASPARGASE) [Suspect]
     Indication: ACUTE LYMPHOCYTIC LEUKAEMIA

REACTIONS (12)
  - ANURIA [None]
  - BLADDER DISTENSION [None]
  - HAEMODIALYSIS [None]
  - HYPERKALAEMIA [None]
  - HYPERTENSION [None]
  - KIDNEY ENLARGEMENT [None]
  - PSEUDOMONAS INFECTION [None]
  - PURULENCE [None]
  - RENAL FAILURE ACUTE [None]
  - URETERIC DILATATION [None]
  - URETERIC OBSTRUCTION [None]
  - URINARY TRACT DISORDER [None]
